FAERS Safety Report 8228668-2 (Version None)
Quarter: 2012Q1

REPORT INFORMATION
  Report Type: 
  Country: None (occurrence: None)
  Receive Date: 20120322
  Receipt Date: 20120313
  Transmission Date: 20120608
  Serious: Yes (Other)
  Sender: FDA-Public Use
  Company Number: FR-NOVOPROD-347510

PATIENT
  Age: 76 Year
  Sex: Female

DRUGS (2)
  1. REPAGLINIDE [Suspect]
     Indication: PRODUCT USED FOR UNKNOWN INDICATION
     Dosage: UNK
     Route: 048
     Dates: start: 20120226, end: 20120226
  2. BISOPROLOL FUMARATE [Suspect]
     Indication: PRODUCT USED FOR UNKNOWN INDICATION
     Dosage: UNK
     Route: 048
     Dates: start: 20120226, end: 20120226

REACTIONS (2)
  - HYPOGLYCAEMIC COMA [None]
  - WRONG DRUG ADMINISTERED [None]
